FAERS Safety Report 19175921 (Version 1)
Quarter: 2021Q2

REPORT INFORMATION
  Report Type: Spontaneous
  Country: DE (occurrence: DE)
  Receive Date: 20210423
  Receipt Date: 20210423
  Transmission Date: 20210717
  Serious: Yes (Other)
  Sender: FDA-Public Use
  Company Number: DE-BAUSCH-BL-2021-013977

PATIENT
  Age: 72 Year
  Sex: Female

DRUGS (3)
  1. DEXAMETHASON [Suspect]
     Active Substance: DEXAMETHASONE
     Indication: PRODUCT USED FOR UNKNOWN INDICATION
     Dosage: DOSE: HIGH DOSE
     Route: 065
  2. DEXAMETHASON [Suspect]
     Active Substance: DEXAMETHASONE
     Indication: PRODUCT USED FOR UNKNOWN INDICATION
     Dosage: DOSE: HIGH DOSE
     Route: 065
  3. DEKRISTOL [Suspect]
     Active Substance: CHOLECALCIFEROL
     Indication: PRODUCT USED FOR UNKNOWN INDICATION
     Route: 048

REACTIONS (8)
  - Constipation [Unknown]
  - Off label use [Unknown]
  - Toxicity to various agents [Unknown]
  - Contraindication to medical treatment [Unknown]
  - Condition aggravated [Unknown]
  - Memory impairment [Unknown]
  - Incontinence [Unknown]
  - Confusional state [Unknown]
